FAERS Safety Report 14260777 (Version 2)
Quarter: 2018Q3

REPORT INFORMATION
  Report Type: Spontaneous
  Country: US (occurrence: US)
  Receive Date: 20171207
  Receipt Date: 20180822
  Transmission Date: 20181010
  Serious: No
  Sender: FDA-Public Use
  Company Number: US-BRISTOL-MYERS SQUIBB COMPANY-BMS-2017-110652

PATIENT
  Age: 33 Year
  Sex: Female
  Weight: 98.9 kg

DRUGS (2)
  1. YERVOY [Suspect]
     Active Substance: IPILIMUMAB
     Indication: METASTATIC MALIGNANT MELANOMA
     Dosage: 10 MG/KG, Q3WK
     Route: 042
     Dates: start: 20170322
  2. YERVOY [Suspect]
     Active Substance: IPILIMUMAB
     Indication: PRODUCT USED FOR UNKNOWN INDICATION
     Dosage: 10 MG/KG, Q3MO
     Route: 042

REACTIONS (3)
  - Off label use [Unknown]
  - Prescribed overdose [Unknown]
  - Weight decreased [Unknown]

NARRATIVE: CASE EVENT DATE: 20171204
